FAERS Safety Report 11534553 (Version 1)
Quarter: 2015Q3

REPORT INFORMATION
  Report Type: Spontaneous
  Country: US (occurrence: None)
  Receive Date: 20150921
  Receipt Date: 20150921
  Transmission Date: 20151125
  Serious: Yes (Other)
  Sender: FDA-Public Use
  Company Number: None

PATIENT
  Age: 53 Year
  Sex: Female

DRUGS (1)
  1. HUMIRA [Suspect]
     Active Substance: ADALIMUMAB
     Indication: OVARIAN CYST
     Dosage: 9/1/15 ( ONLY HADE ONE DOSE)
     Dates: start: 20150901

REACTIONS (2)
  - Device malfunction [None]
  - Drug dose omission [None]

NARRATIVE: CASE EVENT DATE: 20150915
